FAERS Safety Report 18875816 (Version 1)
Quarter: 2021Q1

REPORT INFORMATION
  Report Type: Spontaneous
  Country: US (occurrence: US)
  Receive Date: 20210211
  Receipt Date: 20210211
  Transmission Date: 20210420
  Serious: Yes (Other)
  Sender: FDA-Public Use
  Company Number: US-SA-2021SA038826

PATIENT
  Age: 69 Year
  Sex: Female
  Weight: 80.7 kg

DRUGS (1)
  1. DUPIXENT [Suspect]
     Active Substance: DUPILUMAB
     Indication: DERMATITIS ATOPIC
     Dosage: 300 MG, QOW
     Route: 058
     Dates: start: 201809

REACTIONS (7)
  - Eye pain [Unknown]
  - Insomnia [Unknown]
  - Hallucination [Unknown]
  - Chest pain [Unknown]
  - Alopecia [Unknown]
  - Amnesia [Unknown]
  - Nightmare [Unknown]
